FAERS Safety Report 9343313 (Version 3)
Quarter: 2014Q1

REPORT INFORMATION
  Report Type: Spontaneous
  Country: US (occurrence: US)
  Receive Date: 20130612
  Receipt Date: 20140320
  Transmission Date: 20141002
  Serious: Yes (Hospitalization, Other)
  Sender: FDA-Public Use
  Company Number: US-B.I. PHARMACEUTICALS,INC./RIDGEFIELD-2013-BI-16253BP

PATIENT
  Age: 66 Year
  Sex: Female
  Weight: 49.9 kg

DRUGS (15)
  1. PRADAXA [Suspect]
     Indication: PRODUCT USED FOR UNKNOWN INDICATION
     Dosage: 150 MG
     Route: 048
     Dates: start: 20110301, end: 20110322
  2. MULTAQ [Concomitant]
     Route: 065
  3. DICYCLOMINE [Concomitant]
     Route: 065
  4. DIGOXIN [Concomitant]
     Route: 065
  5. POTASSIUM CHLORIDE [Concomitant]
     Dosage: 20 MEQ
     Route: 065
  6. FOLIC ACID [Concomitant]
     Route: 065
  7. METOPROLOL [Concomitant]
     Dosage: 100 MG
     Route: 065
  8. DIPHENOXYLATE-ATROPINE [Concomitant]
     Route: 065
  9. LEVOTHYROXINE [Concomitant]
     Dosage: 175 MCG
     Route: 065
  10. VYTORIN [Concomitant]
     Route: 065
  11. NORCO [Concomitant]
     Route: 065
  12. EFFEXOR [Concomitant]
     Dosage: 75 MG
     Route: 065
  13. LASIX [Concomitant]
     Dosage: 40 MG
     Route: 065
  14. ROBAXIN [Concomitant]
     Route: 065
  15. LOVENOX [Concomitant]
     Route: 065

REACTIONS (6)
  - Subarachnoid haemorrhage [Unknown]
  - Pulmonary embolism [Unknown]
  - Cardiac failure acute [Unknown]
  - International normalised ratio increased [Unknown]
  - Fall [Unknown]
  - Vaginal haemorrhage [Recovered/Resolved]
